FAERS Safety Report 8385668-X (Version None)
Quarter: 2012Q2

REPORT INFORMATION
  Report Type: 
  Country: None (occurrence: None)
  Receive Date: 20120525
  Receipt Date: 20120517
  Transmission Date: 20120825
  Serious: No
  Sender: FDA-Public Use
  Company Number: US-PFIZER INC-2012122290

PATIENT
  Sex: Female

DRUGS (1)
  1. INLYTA [Suspect]
     Dosage: 5 MG, ONE TABLET EVERY 12 HOURS
     Dates: start: 20120403

REACTIONS (1)
  - ARTHRALGIA [None]
